FAERS Safety Report 22064442 (Version 1)
Quarter: 2023Q1

REPORT INFORMATION
  Report Type: Spontaneous
  Country: US (occurrence: None)
  Receive Date: 20230303
  Receipt Date: 20230303
  Transmission Date: 20230418
  Serious: Yes (Other)
  Sender: FDA-Public Use
  Company Number: None

PATIENT
  Age: 30 Year
  Sex: Female
  Weight: 49.05 kg

DRUGS (13)
  1. CIPROFLOXACIN [Suspect]
     Active Substance: CIPROFLOXACIN
     Indication: Gastrointestinal bacterial overgrowth
     Dosage: FREQUENCY : EVERY 12 HOURS;?
     Route: 048
     Dates: start: 20230228, end: 20230301
  2. LATANOPROST [Concomitant]
     Active Substance: LATANOPROST
  3. Levobunelol [Concomitant]
  4. CILOSTAZOL [Concomitant]
     Active Substance: CILOSTAZOL
  5. OMEPRAZOLE [Concomitant]
     Active Substance: OMEPRAZOLE
  6. TIZANIDINE [Concomitant]
     Active Substance: TIZANIDINE
  7. SRONYX [Concomitant]
     Active Substance: ETHINYL ESTRADIOL\LEVONORGESTREL
  8. METRONIDAZOLE [Concomitant]
     Active Substance: METRONIDAZOLE
  9. CELECOXIB [Concomitant]
     Active Substance: CELECOXIB
  10. GasX [Concomitant]
  11. MAGNESIUM [Concomitant]
     Active Substance: MAGNESIUM
  12. ALIGN [Concomitant]
     Active Substance: BIFIDOBACTERIUM LONGUM SUBSP. INFANTIS
  13. Prenatal with DHT [Concomitant]

REACTIONS (2)
  - Arthralgia [None]
  - Neuralgia [None]

NARRATIVE: CASE EVENT DATE: 20230301
